FAERS Safety Report 15013496 (Version 1)
Quarter: 2018Q2

REPORT INFORMATION
  Report Type: Spontaneous
  Country: US (occurrence: US)
  Receive Date: 20180614
  Receipt Date: 20180614
  Transmission Date: 20180711
  Serious: No
  Sender: FDA-Public Use
  Company Number: US-BAUSCH-BL-2017-036535

PATIENT
  Sex: Female

DRUGS (3)
  1. RELISTOR [Suspect]
     Active Substance: METHYLNALTREXONE BROMIDE
     Dosage: AS NEEDED BASIS
     Route: 065
  2. RELISTOR [Suspect]
     Active Substance: METHYLNALTREXONE BROMIDE
     Route: 065
     Dates: start: 20171227
  3. RELISTOR [Suspect]
     Active Substance: METHYLNALTREXONE BROMIDE
     Indication: PRODUCT USED FOR UNKNOWN INDICATION
     Dosage: FIRST RECEIVED ONE TIME WHILE IN THE HOSPITAL
     Route: 065

REACTIONS (3)
  - Palpitations [Unknown]
  - Withdrawal syndrome [Unknown]
  - Restlessness [Unknown]

NARRATIVE: CASE EVENT DATE: 20171229
